FAERS Safety Report 23015943 (Version 1)
Quarter: 2023Q4

REPORT INFORMATION
  Report Type: Spontaneous
  Country: US (occurrence: US)
  Receive Date: 20231002
  Receipt Date: 20231002
  Transmission Date: 20240110
  Serious: No
  Sender: FDA-Public Use
  Company Number: US-MYLANLABS-2023M1095826

PATIENT
  Sex: Female
  Weight: 42.64 kg

DRUGS (5)
  1. ESTRADIOL TRANSDERMAL SYSTEM [Suspect]
     Active Substance: ESTRADIOL
     Indication: Product used for unknown indication
     Dosage: UNK
     Route: 062
     Dates: start: 20230824, end: 20230827
  2. AMITRIPTYLINE [Concomitant]
     Active Substance: AMITRIPTYLINE
     Dosage: UNK
     Route: 065
  3. MONTELUKAST [Concomitant]
     Active Substance: MONTELUKAST SODIUM
     Dosage: UNK
     Route: 065
  4. PAROXETINE [Concomitant]
     Active Substance: PAROXETINE
     Dosage: UNK
     Route: 065
  5. TRYPTOPHAN [Concomitant]
     Active Substance: TRYPTOPHAN
     Dosage: UNK
     Route: 065

REACTIONS (3)
  - Product adhesion issue [Unknown]
  - Application site pain [Recovering/Resolving]
  - Application site irritation [Recovering/Resolving]
